FAERS Safety Report 7438816-X (Version None)
Quarter: 2011Q2

REPORT INFORMATION
  Report Type: 
  Country: None (occurrence: None)
  Receive Date: 20110426
  Receipt Date: 20110413
  Transmission Date: 20111010
  Serious: Yes (Other)
  Sender: FDA-Public Use
  Company Number: CA-GENENTECH-312999

PATIENT
  Sex: Female
  Weight: 84 kg

DRUGS (8)
  1. CYCLOKAPRON [Concomitant]
     Indication: PRODUCT USED FOR UNKNOWN INDICATION
  2. OXEZE [Concomitant]
     Indication: PRODUCT USED FOR UNKNOWN INDICATION
  3. FLUTICASONE FUROATE [Concomitant]
     Indication: PRODUCT USED FOR UNKNOWN INDICATION
  4. XOLAIR [Suspect]
     Indication: ASTHMA
     Dosage: 150 MG, 1/MONTH
     Route: 058
     Dates: start: 20070920
  5. XOLAIR [Suspect]
     Dosage: 150 MG, 1/MONTH
     Route: 058
     Dates: start: 20100225
  6. PULMICORT [Concomitant]
     Indication: PRODUCT USED FOR UNKNOWN INDICATION
  7. XOLAIR [Suspect]
     Dosage: 150 MG, Q2W
     Dates: start: 20091203
  8. CLARITHROMYCIN [Concomitant]
     Indication: PRODUCT USED FOR UNKNOWN INDICATION

REACTIONS (13)
  - INFLUENZA [None]
  - NASOPHARYNGITIS [None]
  - NASAL CONGESTION [None]
  - HAEMOGLOBIN DECREASED [None]
  - MALAISE [None]
  - CONTUSION [None]
  - DIARRHOEA [None]
  - ASTHMA [None]
  - FOOD POISONING [None]
  - CHEST DISCOMFORT [None]
  - VAGINAL HAEMORRHAGE [None]
  - VOMITING [None]
  - BRONCHITIS [None]
